FAERS Safety Report 6079354-9 (Version None)
Quarter: 2009Q1

REPORT INFORMATION
  Report Type: 
  Country: None (occurrence: None)
  Receive Date: 20090216
  Receipt Date: 20090209
  Transmission Date: 20090719
  Serious: Yes (Other)
  Sender: FDA-Public Use
  Company Number: US-ASTRAZENECA-2009UW03643

PATIENT
  Sex: Female

DRUGS (2)
  1. ATACAND [Suspect]
     Dosage: 16 MG
     Route: 048
  2. ATACAND [Suspect]
     Dosage: 32 MG
     Route: 048

REACTIONS (3)
  - CEREBROVASCULAR ACCIDENT [None]
  - FATIGUE [None]
  - VISION BLURRED [None]
